FAERS Safety Report 18604236 (Version 1)
Quarter: 2020Q4

REPORT INFORMATION
  Report Type: Spontaneous
  Country: US (occurrence: US)
  Receive Date: 20201210
  Receipt Date: 20201210
  Transmission Date: 20210114
  Serious: Yes (Other)
  Sender: FDA-Public Use
  Company Number: None

PATIENT
  Age: 67 Year
  Sex: Female
  Weight: 104 kg

DRUGS (1)
  1. FERAHEME [Suspect]
     Active Substance: FERUMOXYTOL NON-STOICHIOMETRIC MAGNETITE
     Indication: IRON DEFICIENCY ANAEMIA
     Route: 042
     Dates: start: 20201209, end: 20201209

REACTIONS (8)
  - Urinary incontinence [None]
  - Chest pain [None]
  - Vomiting [None]
  - Hypotension [None]
  - Infusion related reaction [None]
  - Urticaria [None]
  - Pruritus [None]
  - Anal incontinence [None]

NARRATIVE: CASE EVENT DATE: 20201209
